FAERS Safety Report 17914435 (Version 1)
Quarter: 2020Q2

REPORT INFORMATION
  Report Type: Spontaneous
  Country: SI (occurrence: SI)
  Receive Date: 20200619
  Receipt Date: 20200619
  Transmission Date: 20200714
  Serious: Yes (Other)
  Sender: FDA-Public Use
  Company Number: SI-TEVA-2020-SI-1788087

PATIENT
  Age: 78 Year
  Sex: Male

DRUGS (3)
  1. SORVASTA [Concomitant]
     Active Substance: ROSUVASTATIN CALCIUM
  2. DOCETAXEL. [Suspect]
     Active Substance: DOCETAXEL
     Indication: PROSTATE CANCER
     Dosage: 160 MG/8ML , UNIT DOSE: 125.25 MG
     Route: 042
     Dates: start: 20191218, end: 20200224
  3. DEGARELIX [Concomitant]
     Active Substance: DEGARELIX

REACTIONS (1)
  - Infusion related reaction [Recovered/Resolved]

NARRATIVE: CASE EVENT DATE: 20200224
